FAERS Safety Report 8186007-X (Version None)
Quarter: 2012Q1

REPORT INFORMATION
  Report Type: 
  Country: None (occurrence: None)
  Receive Date: 20120306
  Receipt Date: 20120224
  Transmission Date: 20120608
  Serious: Yes (Hospitalization, Other)
  Sender: FDA-Public Use
  Company Number: FR-PAR PHARMACEUTICAL, INC-2012SCPR004240

PATIENT

DRUGS (2)
  1. METRONIDAZOLE [Suspect]
     Indication: BRAIN ABSCESS
     Dosage: 1.5 G, DAILY
     Route: 048
  2. CEFTRIAXONE [Suspect]
     Indication: BRAIN ABSCESS
     Dosage: 4 G, DAILY

REACTIONS (4)
  - TOXIC ENCEPHALOPATHY [None]
  - CEREBELLAR SYNDROME [None]
  - VITH NERVE PARALYSIS [None]
  - PERIPHERAL SENSORY NEUROPATHY [None]
